FAERS Safety Report 21094262 (Version 1)
Quarter: 2022Q3

REPORT INFORMATION
  Report Type: Spontaneous
  Country: JP (occurrence: JP)
  Receive Date: 20220718
  Receipt Date: 20220718
  Transmission Date: 20221027
  Serious: Yes (Other)
  Sender: FDA-Public Use
  Company Number: JP-PFIZER INC-PV202200023724

PATIENT

DRUGS (1)
  1. EPLERENONE [Suspect]
     Active Substance: EPLERENONE
     Dosage: 25 MG
     Route: 048

REACTIONS (1)
  - Hypokalaemia [Unknown]
